FAERS Safety Report 5808996-8 (Version None)
Quarter: 2008Q3

REPORT INFORMATION
  Report Type: 
  Country: None (occurrence: None)
  Receive Date: 20080710
  Receipt Date: 20080710
  Transmission Date: 20090109
  Serious: Yes (Life-Threatening, Hospitalization)
  Sender: FDA-Public Use
  Company Number: None

PATIENT
  Sex: Female
  Weight: 72.5755 kg

DRUGS (2)
  1. AVASTIN [Suspect]
     Indication: MALIGNANT GLIOMA
     Dosage: 10MG/KG ONCE IV
     Route: 042
     Dates: start: 20080603, end: 20080603
  2. AVASTIN [Suspect]
     Indication: NEOPLASM RECURRENCE
     Dosage: 10MG/KG ONCE IV
     Route: 042
     Dates: start: 20080603, end: 20080603

REACTIONS (3)
  - HEADACHE [None]
  - IMPAIRED HEALING [None]
  - INTRACRANIAL HYPOTENSION [None]
